FAERS Safety Report 25873769 (Version 1)
Quarter: 2025Q4

REPORT INFORMATION
  Report Type: Spontaneous
  Country: US (occurrence: US)
  Receive Date: 20251002
  Receipt Date: 20251002
  Transmission Date: 20260118
  Serious: No
  Sender: INTRA-CELLULAR THERAPIES
  Company Number: US-INTRA-CELLULAR THERAPIES, INC.-2025ICT01314

PATIENT
  Age: 61 Year
  Sex: Female

DRUGS (2)
  1. CAPLYTA [Suspect]
     Active Substance: LUMATEPERONE
     Dosage: 21 MG
  2. CYMBALTA [Concomitant]
     Active Substance: DULOXETINE HYDROCHLORIDE

REACTIONS (2)
  - Bruxism [Not Recovered/Not Resolved]
  - Akathisia [Not Recovered/Not Resolved]
